FAERS Safety Report 5273342-8 (Version None)
Quarter: 2007Q1

REPORT INFORMATION
  Report Type: 
  Country: None (occurrence: None)
  Receive Date: 20070319
  Receipt Date: 20070302
  Transmission Date: 20070707
  Serious: Yes (Other)
  Sender: FDA-Public Use
  Company Number: DSA_29568_2007

PATIENT
  Sex: Female

DRUGS (2)
  1. TILDIEM [Suspect]
     Dosage: DF
  2. TRITACE [Suspect]
     Dosage: DF

REACTIONS (2)
  - APHAGIA [None]
  - GENERAL PHYSICAL HEALTH DETERIORATION [None]
